FAERS Safety Report 9845724 (Version 1)
Quarter: 2013Q4

REPORT INFORMATION
  Report Type: Spontaneous
  Country: US (occurrence: None)
  Receive Date: 20131219
  Receipt Date: 20131219
  Transmission Date: 20140711
  Serious: Yes (Other)
  Sender: FDA-Public Use
  Company Number: 163-20785-13090399

PATIENT
  Age: 70 Year
  Sex: Female
  Weight: 52.2 kg

DRUGS (14)
  1. THALOMID [Suspect]
     Indication: PLASMA CELL MYELOMA
     Route: 048
     Dates: start: 200705
  2. FOLIC ACID [Concomitant]
  3. CALCIUM CITRATE + D (CALCIUM CITRATE W/COLECALCIFEROL) [Concomitant]
  4. LEVOXYL (LEVOTHYROXINE SODIUM) [Concomitant]
  5. ZOMETA (ZOLEDRONIC ACID) [Concomitant]
  6. DECADRON (DEXAMETHASONE) [Concomitant]
  7. KYPROLIS [Concomitant]
  8. LOVENOX (HEPARIN-FRACTION, SODIUM SALT) [Concomitant]
  9. KYTRIL (GRANISETRON) [Concomitant]
  10. OXYCODONE HCL ER (OXYCODONE HYDROCHLORIDE) [Concomitant]
  11. OMEPRAZOLE [Concomitant]
  12. MULTIVITAMINS [Concomitant]
  13. SUDAFED (PSEUDOEPHEDRINE HYDROCHLORIDE) [Concomitant]
  14. TYLENOL (PARACETAMOL) [Concomitant]

REACTIONS (1)
  - Thrombosis [None]
